FAERS Safety Report 18259938 (Version 2)
Quarter: 2020Q4

REPORT INFORMATION
  Report Type: Spontaneous
  Country: PT (occurrence: PT)
  Receive Date: 20200912
  Receipt Date: 20201102
  Transmission Date: 20210113
  Serious: Yes (Other)
  Sender: FDA-Public Use
  Company Number: PT-009507513-2009PRT002661

PATIENT
  Age: 71 Year
  Sex: Male

DRUGS (13)
  1. XARELTO [Interacting]
     Active Substance: RIVAROXABAN
     Dosage: 1 DOSAGE FORM, QD (1 TIME PER DAY), LUNCH
     Route: 048
     Dates: start: 20200730
  2. ULTIBRO BREEZEHALER [Concomitant]
     Active Substance: GLYCOPYRRONIUM\INDACATEROL
     Dosage: UNK, INHALATION POWDER, CAPSULE
     Route: 048
  3. PERMIXON [Concomitant]
     Active Substance: HERBALS\SAW PALMETTO
     Dosage: UNK
     Route: 048
  4. AMLODIPINE [Concomitant]
     Active Substance: AMLODIPINE BESYLATE
     Dosage: UNK
     Route: 048
  5. OMEPRAZOLE. [Concomitant]
     Active Substance: OMEPRAZOLE
     Dosage: UNK
     Route: 048
  6. ATOZET [Suspect]
     Active Substance: ATORVASTATIN CALCIUM\EZETIMIBE
     Dosage: 1 DOSAGE FORM, QD (1 TIME PER DAY), DINNER, FILM-COATED TABLET
     Route: 048
     Dates: start: 20200730
  7. CORDARONE [Interacting]
     Active Substance: AMIODARONE HYDROCHLORIDE
     Dosage: 200 MILLIGRAM, QD,1 TIME PER DAY, BREAKFAST
     Route: 048
     Dates: start: 20200730
  8. PENTOXIFYLLINE. [Concomitant]
     Active Substance: PENTOXIFYLLINE
     Dosage: UNK
  9. CLOPIDOGREL [Concomitant]
     Active Substance: CLOPIDOGREL BISULFATE
     Dosage: UNK
     Route: 048
  10. RAMIPRIL. [Concomitant]
     Active Substance: RAMIPRIL
     Dosage: UNK
     Route: 048
  11. LORAZEPAM. [Concomitant]
     Active Substance: LORAZEPAM
     Dosage: UNK
     Route: 048
  12. BISOPROLOL [Concomitant]
     Active Substance: BISOPROLOL
     Dosage: UNK
     Route: 048
  13. MIFLONIDE [Concomitant]
     Active Substance: BUDESONIDE
     Dosage: UNK,MIFLONIDE BREEZHALER, INHALATION POWDER, CAPSULE
     Route: 048

REACTIONS (6)
  - Balance disorder [Unknown]
  - Dizziness [Unknown]
  - Confusional state [Unknown]
  - Myalgia [Recovered/Resolved]
  - Headache [Unknown]
  - Heart rate decreased [Unknown]

NARRATIVE: CASE EVENT DATE: 20200802
